FAERS Safety Report 8892951 (Version 1)
Quarter: 2012Q4

REPORT INFORMATION
  Report Type: Spontaneous
  Country: DE (occurrence: None)
  Receive Date: 20121101
  Receipt Date: 20121101
  Transmission Date: 20130627
  Serious: Yes (Hospitalization)
  Sender: FDA-Public Use
  Company Number: 2011RR-41183

PATIENT
  Age: 75 Year
  Sex: Male
  Weight: 76 kg

DRUGS (3)
  1. AMOXICILLIN [Suspect]
     Route: 048
     Dates: start: 20101213, end: 20101227
  2. KLACID (CLARITHROMYCIN) [Suspect]
     Route: 048
     Dates: start: 20101213, end: 20101227
  3. PANTOZOL [Concomitant]

REACTIONS (2)
  - Liver disorder [None]
  - Jaundice [None]
